FAERS Safety Report 17697735 (Version 1)
Quarter: 2020Q2

REPORT INFORMATION
  Report Type: Spontaneous
  Country: US (occurrence: US)
  Receive Date: 20200422
  Receipt Date: 20200422
  Transmission Date: 20200714
  Serious: Yes (Hospitalization, Disabling)
  Sender: FDA-Public Use
  Company Number: None

PATIENT
  Age: 34 Year
  Sex: Female
  Weight: 70.31 kg

DRUGS (5)
  1. VITAMIN D [Concomitant]
     Active Substance: VITAMIN D NOS
  2. MIRENA [Suspect]
     Active Substance: LEVONORGESTREL
     Dates: start: 20200116, end: 20200420
  3. VITAMIN C [Concomitant]
     Active Substance: ASCORBIC ACID
  4. FERROUS SULFATE. [Concomitant]
     Active Substance: FERROUS SULFATE
  5. WOMENS MULTIVITAMIN [Concomitant]

REACTIONS (4)
  - Pelvic pain [None]
  - Inflammatory bowel disease [None]
  - Haemorrhagic cyst [None]
  - Urinary retention [None]

NARRATIVE: CASE EVENT DATE: 20200210
